FAERS Safety Report 7532926-4 (Version None)
Quarter: 2011Q2

REPORT INFORMATION
  Report Type: 
  Country: None (occurrence: None)
  Receive Date: 20110601
  Receipt Date: 20110518
  Transmission Date: 20111010
  Serious: Yes (Other)
  Sender: FDA-Public Use
  Company Number: 2011SP023044

PATIENT
  Age: 45 Year
  Sex: Female

DRUGS (4)
  1. REMERON-S (MIRTAZAPINE /01293201/) [Suspect]
     Indication: DEPRESSION
     Dosage: 7.5 MG' QD, 7.5 MG; QD
     Dates: start: 20110401
  2. REMERON-S (MIRTAZAPINE /01293201/) [Suspect]
     Indication: DEPRESSION
     Dosage: 7.5 MG' QD, 7.5 MG; QD
     Dates: start: 20060101, end: 20070101
  3. CYCLOKAPRON [Concomitant]
  4. MIRTAZAPINE [Concomitant]

REACTIONS (9)
  - UTERINE LEIOMYOMA [None]
  - WEIGHT INCREASED [None]
  - ABDOMINAL PAIN UPPER [None]
  - PRODUCT SUBSTITUTION ISSUE [None]
  - SOMNOLENCE [None]
  - OCULAR ICTERUS [None]
  - DRUG EFFECT DECREASED [None]
  - FATIGUE [None]
  - HEADACHE [None]
